FAERS Safety Report 9342987 (Version 3)
Quarter: 2013Q3

REPORT INFORMATION
  Report Type: Report from Study
  Country: CA (occurrence: CA)
  Receive Date: 20130611
  Receipt Date: 20130813
  Transmission Date: 20140515
  Serious: Yes (Hospitalization)
  Sender: FDA-Public Use
  Company Number: CA-CELGENEUS-028-21880-13051240

PATIENT
  Age: 81 Year
  Sex: Male
  Weight: 82.2 kg

DRUGS (25)
  1. REVLIMID [Suspect]
     Indication: PLASMA CELL MYELOMA
     Dosage: 25 MILLIGRAM
     Route: 048
     Dates: start: 20120202, end: 20130324
  2. REVLIMID [Suspect]
     Dosage: 25 MILLIGRAM
     Route: 048
     Dates: start: 20130523, end: 20130602
  3. DEXAMETHASONE [Suspect]
     Indication: PLASMA CELL MYELOMA
     Dosage: 40 MILLIGRAM
     Route: 065
     Dates: start: 20120202, end: 20120223
  4. DEXAMETHASONE [Suspect]
     Dosage: 20 MILLIGRAM
     Route: 065
     Dates: start: 20120229, end: 20121001
  5. DEXAMETHASONE [Suspect]
     Route: 065
     Dates: start: 20121008, end: 20121008
  6. DEXAMETHASONE [Suspect]
     Dosage: 8 MILLIGRAM
     Route: 065
     Dates: start: 20121015, end: 20121112
  7. DEXAMETHASONE [Suspect]
     Route: 065
     Dates: start: 20121119, end: 20121119
  8. CARFILZOMIB [Suspect]
     Indication: PLASMA CELL MYELOMA
     Route: 065
  9. ACYCLOVIR [Concomitant]
     Indication: ANTIVIRAL PROPHYLAXIS
     Dosage: 800 MILLIGRAM
     Route: 048
     Dates: start: 20120201
  10. AREDIA [Concomitant]
     Indication: PLASMA CELL MYELOMA
     Dosage: 90 MILLIGRAM
     Route: 041
     Dates: start: 20100316
  11. ASA [Concomitant]
     Indication: ANTICOAGULANT THERAPY
     Dosage: 81 MILLIGRAM
     Route: 048
     Dates: start: 2006
  12. ASA [Concomitant]
     Indication: ANTIPLATELET THERAPY
     Dosage: 81 MILLIGRAM
     Route: 048
     Dates: start: 20060330
  13. ASA [Concomitant]
     Indication: CARDIOVASCULAR EVENT PROPHYLAXIS
  14. HYDRAZIDE [Concomitant]
     Indication: HYPERTENSION
     Dosage: 25 MILLIGRAM
     Route: 048
     Dates: start: 20060330
  15. LASIX [Concomitant]
     Indication: FLUID RETENTION
     Dosage: 80 MILLIGRAM
     Route: 048
     Dates: start: 20120419
  16. LOMOTIL [Concomitant]
     Indication: DIARRHOEA
     Route: 048
     Dates: start: 20130205, end: 20130331
  17. METFORMIN [Concomitant]
     Indication: HYPERGLYCAEMIA
     Dosage: 1000 MILLIGRAM
     Route: 048
     Dates: start: 20121003
  18. METOPROLOL [Concomitant]
     Indication: ANGINA PECTORIS
     Dosage: 50 MILLIGRAM
     Route: 048
     Dates: start: 20060330
  19. PANTOPRAZOLE [Concomitant]
     Indication: DYSPEPSIA
     Dosage: 40 MILLIGRAM
     Route: 048
     Dates: start: 20120201
  20. RAMIPRIL [Concomitant]
     Indication: HYPERTENSION
     Dosage: 10 MILLIGRAM
     Route: 048
     Dates: start: 20060330
  21. SLOW K [Concomitant]
     Indication: HYPOKALAEMIA
     Dosage: 2 TABLET
     Route: 048
     Dates: start: 20120420
  22. TERAZOSIN [Concomitant]
     Indication: HYPERTENSION
     Dosage: 2 MILLIGRAM
     Route: 048
     Dates: start: 20111201
  23. TUMS [Concomitant]
     Indication: PROPHYLAXIS
     Dosage: 1 TABLET
     Route: 048
     Dates: start: 20120918
  24. VITAMIN B12 [Concomitant]
     Indication: VITAMIN B12 DEFICIENCY
     Route: 030
     Dates: start: 20120111
  25. IMMODIUM [Concomitant]
     Indication: DIARRHOEA
     Route: 048
     Dates: start: 20130401

REACTIONS (1)
  - Small intestinal obstruction [Recovered/Resolved]
